FAERS Safety Report 13451875 (Version 1)
Quarter: 2017Q2

REPORT INFORMATION
  Report Type: Spontaneous
  Country: US (occurrence: US)
  Receive Date: 20170418
  Receipt Date: 20170418
  Transmission Date: 20170830
  Serious: No
  Sender: FDA-Public Use
  Company Number: None

PATIENT

DRUGS (2)
  1. HEPARIN  25,000 UNITS [Suspect]
     Active Substance: HEPARIN SODIUM
     Dosage: 25,000 UNITS
  2. BBRAUN INFUSOMAT SPACE PUMPS [Suspect]
     Active Substance: DEVICE

REACTIONS (2)
  - Device infusion issue [None]
  - Incorrect dose administered [None]
